FAERS Safety Report 8372911-6 (Version None)
Quarter: 2012Q2

REPORT INFORMATION
  Report Type: 
  Country: None (occurrence: None)
  Receive Date: 20120521
  Receipt Date: 20120427
  Transmission Date: 20120825
  Serious: Yes (Life-Threatening, Hospitalization)
  Sender: FDA-Public Use
  Company Number: FR-SANOFI-AVENTIS-2012SA031687

PATIENT
  Age: 89 Year
  Sex: Female
  Weight: 57 kg

DRUGS (15)
  1. AMLODIPINE BESYLATE [Suspect]
     Dosage: FREQUENCY: 1-0-1
     Route: 048
  2. XANAX [Suspect]
     Route: 065
  3. LEVOTHYROXINE SODIUM [Concomitant]
  4. PLAVIX [Suspect]
     Route: 065
     Dates: start: 20120414, end: 20120415
  5. PLAVIX [Suspect]
     Route: 065
  6. ATORVASTATIN [Suspect]
     Route: 065
  7. ATORVASTATIN [Suspect]
     Route: 065
     Dates: start: 20120414, end: 20120415
  8. IRBESARTAN [Suspect]
     Dosage: 56 INTAKES
     Route: 048
     Dates: start: 20120414, end: 20120415
  9. IRBESARTAN [Suspect]
     Dosage: FREQUENCY:1-0-0
     Route: 048
  10. XANAX [Suspect]
     Route: 065
     Dates: start: 20120414, end: 20120415
  11. ZOLPIDEM [Suspect]
     Route: 065
  12. IMOVANE [Concomitant]
  13. AMLODIPINE BESYLATE [Suspect]
     Dosage: 20 INTAKES
     Route: 048
     Dates: start: 20120414, end: 20120415
  14. TANGANIL [Concomitant]
  15. ZOLPIDEM [Suspect]
     Route: 065
     Dates: start: 20120414, end: 20120415

REACTIONS (3)
  - HYPOTENSION [None]
  - MULTIPLE DRUG OVERDOSE INTENTIONAL [None]
  - RENAL FAILURE ACUTE [None]
